FAERS Safety Report 8443593-X (Version None)
Quarter: 2012Q2

REPORT INFORMATION
  Report Type: 
  Country: None (occurrence: None)
  Receive Date: 20120618
  Receipt Date: 20120612
  Transmission Date: 20120825
  Serious: No
  Sender: FDA-Public Use
  Company Number: US-PFIZER INC-2012142518

PATIENT
  Sex: Female
  Weight: 63 kg

DRUGS (3)
  1. LIPITOR [Suspect]
     Indication: BLOOD CHOLESTEROL INCREASED
     Dosage: UNK, DAILY
     Route: 048
     Dates: end: 20120610
  2. LISINOPRIL [Concomitant]
     Indication: HYPERTENSION
     Dosage: 10 MG, DAILY
  3. DYAZIDE [Concomitant]
     Indication: HYPERTENSION
     Dosage: UNK, DAILY

REACTIONS (2)
  - ALOPECIA [None]
  - EXPIRED DRUG ADMINISTERED [None]
